FAERS Safety Report 6268286-9 (Version None)
Quarter: 2009Q3

REPORT INFORMATION
  Report Type: 
  Country: None (occurrence: None)
  Receive Date: 20090713
  Receipt Date: 20090713
  Transmission Date: 20100115
  Serious: Yes (Life-Threatening, Disabling, Other)
  Sender: FDA-Public Use
  Company Number: None

PATIENT
  Age: 65 Year
  Sex: Female
  Weight: 68.0396 kg

DRUGS (1)
  1. ACTONEL [Suspect]
     Indication: BLOOD CALCIUM DECREASED
     Dosage: ONCE MONTH PO
     Route: 048
     Dates: start: 20090603, end: 20090706

REACTIONS (1)
  - RENAL CANCER [None]
